FAERS Safety Report 11496366 (Version 2)
Quarter: 2020Q3

REPORT INFORMATION
  Report Type: Report from Study
  Country: FR (occurrence: FR)
  Receive Date: 20150911
  Receipt Date: 20180529
  Transmission Date: 20201104
  Serious: Yes (Hospitalization)
  Sender: FDA-Public Use
  Company Number: FR-JNJFOC-20150903813

PATIENT
  Age: 63 Year
  Sex: Female
  Weight: 68 kg

DRUGS (4)
  1. CALEYX [Suspect]
     Active Substance: DOXORUBICIN HYDROCHLORIDE
     Route: 042
  2. CALEYX [Suspect]
     Active Substance: DOXORUBICIN HYDROCHLORIDE
     Indication: OVARIAN CANCER
     Route: 042
     Dates: start: 20150204, end: 20150416
  3. YONDELIS [Suspect]
     Active Substance: TRABECTEDIN
     Route: 042
  4. YONDELIS [Suspect]
     Active Substance: TRABECTEDIN
     Indication: OVARIAN CANCER
     Route: 042
     Dates: start: 20150204, end: 20150416

REACTIONS (1)
  - Ischaemic stroke [Recovered/Resolved]

NARRATIVE: CASE EVENT DATE: 20150515
